FAERS Safety Report 6446390-X (Version None)
Quarter: 2009Q4

REPORT INFORMATION
  Report Type: 
  Country: None (occurrence: None)
  Receive Date: 20091119
  Receipt Date: 20091110
  Transmission Date: 20100525
  Serious: Yes (Death, Other)
  Sender: FDA-Public Use
  Company Number: US-BAXTER-2009BH006538

PATIENT
  Age: 75 Year
  Sex: Male

DRUGS (2)
  1. HEPARIN SODIUM INJECTION [Suspect]
     Indication: THROMBOSIS PROPHYLAXIS
     Route: 010
     Dates: start: 20071109, end: 20071220
  2. HEPARIN SODIUM INJECTION [Suspect]
     Route: 010
     Dates: start: 20071109, end: 20071220

REACTIONS (17)
  - ABDOMINAL DISCOMFORT [None]
  - ARTERIAL HAEMORRHAGE [None]
  - ASTHENIA [None]
  - BLOOD PRESSURE DECREASED [None]
  - CONFUSIONAL STATE [None]
  - DIABETES MELLITUS [None]
  - DIARRHOEA [None]
  - DYSPNOEA [None]
  - HEART RATE INCREASED [None]
  - MALAISE [None]
  - MENTAL STATUS CHANGES [None]
  - NAUSEA [None]
  - PALPITATIONS [None]
  - RENAL FAILURE [None]
  - SWELLING [None]
  - UNRESPONSIVE TO STIMULI [None]
  - VENOUS PRESSURE INCREASED [None]
